FAERS Safety Report 8578987-5 (Version None)
Quarter: 2012Q3

REPORT INFORMATION
  Report Type: 
  Country: None (occurrence: None)
  Receive Date: 20120808
  Receipt Date: 20120730
  Transmission Date: 20120928
  Serious: Yes (Other)
  Sender: FDA-Public Use
  Company Number: JP-PFIZER INC-2012187106

PATIENT
  Age: 63 Year
  Sex: Female

DRUGS (2)
  1. DEPAS [Concomitant]
     Dosage: 1 MG, SINGLE
     Route: 048
     Dates: start: 20120611, end: 20120611
  2. AZULFIDINE [Suspect]
     Indication: RHEUMATOID ARTHRITIS
     Dosage: 1000 MG, 1X/DAY
     Route: 048
     Dates: start: 20120517, end: 20120705

REACTIONS (1)
  - GRANULOCYTOPENIA [None]
